FAERS Safety Report 10448705 (Version 1)
Quarter: 2014Q3

REPORT INFORMATION
  Report Type: Spontaneous
  Country: ZA (occurrence: ZA)
  Receive Date: 20140912
  Receipt Date: 20140912
  Transmission Date: 20150326
  Serious: Yes (Other)
  Sender: FDA-Public Use
  Company Number: ZA-AMGEN-ZAFSP2014068766

PATIENT
  Age: 69 Year
  Sex: Male
  Weight: 87.5 kg

DRUGS (13)
  1. AMLOR [Concomitant]
     Active Substance: AMLODIPINE BESYLATE
     Dosage: 10 MG, QD
  2. ISMO [Concomitant]
     Active Substance: ISOSORBIDE MONONITRATE
     Dosage: 20 MG, BID
     Route: 048
  3. OMEPRAZOLE. [Concomitant]
     Active Substance: OMEPRAZOLE
     Dosage: 20 MG, QD
     Route: 048
  4. ASPIRIN                            /00002701/ [Concomitant]
     Active Substance: ASPIRIN
     Dosage: 1/2 , QD
     Route: 048
  5. HY-PO-TONE [Concomitant]
     Dosage: 250 MG, BID
     Route: 048
  6. ARANESP [Suspect]
     Active Substance: DARBEPOETIN ALFA
     Indication: NEPHROGENIC ANAEMIA
     Dosage: 60 MUG, QWK
     Route: 058
     Dates: start: 20131126
  7. SIMVASTATIN. [Concomitant]
     Active Substance: SIMVASTATIN
     Dosage: 20 MG, QD
     Route: 048
  8. ADCO DOL [Concomitant]
     Dosage: UNK UNK, BID
     Route: 048
  9. CARVETREND [Concomitant]
     Dosage: 25 MG, BID
     Route: 048
  10. ONE ALPHA [Concomitant]
     Active Substance: ALFACALCIDOL
     Dosage: 0.25 MUG, QD
     Route: 048
  11. PHYSIOTENS [Concomitant]
     Active Substance: MOXONIDINE
     Dosage: 0.2 MG, UNK
  12. FORTZAAR COMP [Concomitant]
     Route: 048
  13. ENO TUMS [Concomitant]
     Dosage: UNK UNK, QD

REACTIONS (9)
  - Infection [Unknown]
  - No therapeutic response [Not Recovered/Not Resolved]
  - Nodule [Unknown]
  - Gastritis haemorrhagic [Unknown]
  - Marrow hyperplasia [Unknown]
  - Haemorrhage [Unknown]
  - Anaemia [Unknown]
  - Large intestine polyp [Unknown]
  - Diverticulum [Unknown]

NARRATIVE: CASE EVENT DATE: 201401
